FAERS Safety Report 5881003-7 (Version None)
Quarter: 2008Q3

REPORT INFORMATION
  Report Type: 
  Country: None (occurrence: None)
  Receive Date: 20080912
  Receipt Date: 20080610
  Transmission Date: 20090109
  Serious: No
  Sender: FDA-Public Use
  Company Number: US-ABBOTT-08P-163-0457857-00

PATIENT
  Sex: Female
  Weight: 69.462 kg

DRUGS (7)
  1. HUMIRA [Suspect]
     Indication: ANKYLOSING SPONDYLITIS
     Route: 050
     Dates: start: 20061001
  2. PREDNISONE TAB [Concomitant]
     Indication: ANKYLOSING SPONDYLITIS
     Route: 048
     Dates: start: 20080613
  3. PREDNISONE TAB [Concomitant]
     Route: 048
     Dates: start: 20080422, end: 20080613
  4. LEVOTHYROXINE SODIUM [Concomitant]
     Indication: HYPOTHYROIDISM
     Route: 048
     Dates: start: 19980101
  5. SULFASALAZINE [Concomitant]
     Indication: ANKYLOSING SPONDYLITIS
  6. METRONIDAZOLE [Concomitant]
     Indication: ROSACEA
     Route: 061
  7. RISEDRONATE SODIUM [Concomitant]
     Indication: OSTEOPENIA
     Route: 048

REACTIONS (3)
  - OEDEMA PERIPHERAL [None]
  - PAIN IN EXTREMITY [None]
  - SENSORY DISTURBANCE [None]
